FAERS Safety Report 7224457-6 (Version None)
Quarter: 2011Q1

REPORT INFORMATION
  Report Type: 
  Country: None (occurrence: None)
  Receive Date: 20110113
  Receipt Date: 20110107
  Transmission Date: 20110831
  Serious: No
  Sender: FDA-Public Use
  Company Number: US-PFIZER INC-2011005616

PATIENT
  Sex: Male

DRUGS (2)
  1. LYRICA [Suspect]
     Indication: OFF LABEL USE
  2. LYRICA [Suspect]
     Indication: NERVE INJURY
     Dosage: UNK

REACTIONS (1)
  - AMNESIA [None]
